FAERS Safety Report 16402521 (Version 1)
Quarter: 2019Q2

REPORT INFORMATION
  Report Type: Spontaneous
  Country: IT (occurrence: IT)
  Receive Date: 20190607
  Receipt Date: 20190607
  Transmission Date: 20190711
  Serious: Yes (Other)
  Sender: FDA-Public Use
  Company Number: IT-AMGEN-ITANI2019086814

PATIENT
  Sex: Female

DRUGS (5)
  1. GOSERELIN [Suspect]
     Active Substance: GOSERELIN
     Indication: PRODUCT USED FOR UNKNOWN INDICATION
     Dosage: 3.6 MG, Q4W
     Route: 058
     Dates: start: 20170925
  2. XGEVA [Suspect]
     Active Substance: DENOSUMAB
     Indication: PRODUCT USED FOR UNKNOWN INDICATION
     Dosage: 140 MILLIGRAM, Q4WK
     Route: 058
     Dates: start: 20170925
  3. KISQALI [Suspect]
     Active Substance: RIBOCICLIB
     Indication: PRODUCT USED FOR UNKNOWN INDICATION
     Dosage: 400 MG, 3 TABLETS/DAILY FOR 21 DAYS FOLLOWED BY A 7-DAY BREAK
     Route: 065
     Dates: start: 20170925, end: 20180411
  4. KISQALI [Suspect]
     Active Substance: RIBOCICLIB
     Dosage: 400 UNK
     Route: 065
     Dates: start: 201810
  5. LETROZOLE. [Suspect]
     Active Substance: LETROZOLE
     Indication: PRODUCT USED FOR UNKNOWN INDICATION
     Dosage: 2.5 MILLIGRAM, QD
     Route: 065
     Dates: start: 20170925

REACTIONS (6)
  - Platelet count decreased [Unknown]
  - Palpitations [Unknown]
  - Bronchitis [Unknown]
  - Headache [Recovering/Resolving]
  - Neutropenia [Unknown]
  - Leukopenia [Unknown]
